FAERS Safety Report 6040105-5 (Version None)
Quarter: 2009Q1

REPORT INFORMATION
  Report Type: 
  Country: None (occurrence: None)
  Receive Date: 20090116
  Receipt Date: 20071212
  Transmission Date: 20090719
  Serious: No
  Sender: FDA-Public Use
  Company Number: US-BRISTOL-MYERS SQUIBB COMPANY-14013114

PATIENT
  Age: 21 Year
  Sex: Female

DRUGS (2)
  1. ABILIFY [Suspect]
     Indication: BIPOLAR DISORDER
     Dosage: INITIAL DOSE 5MG DAILY.REDUCED TO 7.5 MG DAILY.
     Route: 048
  2. LAMICTAL [Concomitant]
     Indication: BIPOLAR DISORDER

REACTIONS (1)
  - WEIGHT INCREASED [None]
